FAERS Safety Report 24569974 (Version 1)
Quarter: 2024Q4

REPORT INFORMATION
  Report Type: Spontaneous
  Country: ES (occurrence: ES)
  Receive Date: 20241031
  Receipt Date: 20241031
  Transmission Date: 20250115
  Serious: Yes (Other)
  Sender: EMD SERONO INC
  Company Number: ES-Merck Healthcare KGaA-2024051877

PATIENT
  Age: 69 Year
  Sex: Female

DRUGS (1)
  1. TEPOTINIB [Suspect]
     Active Substance: TEPOTINIB
     Indication: Non-small cell lung cancer
     Dates: start: 20240111, end: 20240215

REACTIONS (1)
  - Hepatitis [Unknown]

NARRATIVE: CASE EVENT DATE: 20240215
